FAERS Safety Report 6085334-X (Version None)
Quarter: 2009Q1

REPORT INFORMATION
  Report Type: 
  Country: None (occurrence: None)
  Receive Date: 20090220
  Receipt Date: 20090210
  Transmission Date: 20090719
  Serious: Yes (Other)
  Sender: FDA-Public Use
  Company Number: GB-PFIZER INC-2009169006

PATIENT

DRUGS (4)
  1. AROMASIN [Suspect]
     Route: 048
  2. CRESTOR [Concomitant]
  3. OMEPRAZOLE [Concomitant]
  4. BONIVA [Concomitant]

REACTIONS (10)
  - ALOPECIA [None]
  - BREAST MASS [None]
  - CHEST PAIN [None]
  - FATIGUE [None]
  - LYMPHOEDEMA [None]
  - NAUSEA [None]
  - PARAESTHESIA [None]
  - PRURITUS [None]
  - TEARFULNESS [None]
  - WHEEZING [None]
